FAERS Safety Report 16844318 (Version 1)
Quarter: 2019Q3

REPORT INFORMATION
  Report Type: Spontaneous
  Country: US (occurrence: US)
  Receive Date: 20190924
  Receipt Date: 20190924
  Transmission Date: 20191005
  Serious: No
  Sender: FDA-Public Use
  Company Number: US-ALLERGAN-1923540US

PATIENT
  Age: 8 Year
  Sex: Female

DRUGS (2)
  1. SAPHRIS [Suspect]
     Active Substance: ASENAPINE MALEATE
     Indication: AFFECTIVE DISORDER
     Dosage: UNK
     Dates: start: 2017
  2. SAPHRIS [Suspect]
     Active Substance: ASENAPINE MALEATE
     Indication: ANXIETY

REACTIONS (2)
  - Product use in unapproved indication [Unknown]
  - Off label use [Unknown]
